FAERS Safety Report 5932887-5 (Version None)
Quarter: 2008Q4

REPORT INFORMATION
  Report Type: 
  Country: None (occurrence: None)
  Receive Date: 20081023
  Receipt Date: 20081016
  Transmission Date: 20090506
  Serious: Yes (Death)
  Sender: FDA-Public Use
  Company Number: 2007JP004384

PATIENT
  Age: 74 Year
  Sex: Male

DRUGS (8)
  1. TACROLIMUS [Suspect]
     Indication: RHEUMATOID ARTHRITIS
     Dosage: 1.5 MG, ORAL
     Route: 048
     Dates: start: 20060317, end: 20070209
  2. BASEN (VOGLIBOSE) TABLET [Concomitant]
  3. KINEDAK (EPALRESTAT) TABLET [Concomitant]
  4. AMARYL [Concomitant]
  5. FUROSEMIDE [Concomitant]
  6. SALOBEL TABLET [Concomitant]
  7. PREDNISOLONE TAB [Concomitant]
  8. LOXONIN (LOXOPROFEN) TABLET [Concomitant]

REACTIONS (2)
  - DIABETIC END STAGE RENAL DISEASE [None]
  - SHOCK [None]
